FAERS Safety Report 20035044 (Version 2)
Quarter: 2021Q4

REPORT INFORMATION
  Report Type: Spontaneous
  Country: DE (occurrence: DE)
  Receive Date: 20211104
  Receipt Date: 20211108
  Transmission Date: 20220303
  Serious: Yes (Hospitalization, Other)
  Sender: FDA-Public Use
  Company Number: DE-ADRED-06975-01

PATIENT
  Age: 80 Year
  Sex: Female
  Weight: 68 kg

DRUGS (11)
  1. PACLITAXEL [Suspect]
     Active Substance: PACLITAXEL
     Indication: Product used for unknown indication
     Dosage: UNK (SCHEMA)
  2. CARBOPLATIN [Suspect]
     Active Substance: CARBOPLATIN
     Indication: Product used for unknown indication
     Dosage: UNK (SCHEMA)
  3. TORSEMIDE [Concomitant]
     Active Substance: TORSEMIDE
     Dosage: 5 MILLIGRAM
  4. METAMIZOL                          /06276701/ [Concomitant]
     Dosage: 500 MILLIGRAM
  5. METOCLOPRAMID                      /00041901/ [Concomitant]
     Dosage: 10 MILLIGRAM
  6. MORPHINE [Concomitant]
     Active Substance: MORPHINE
     Dosage: 10 MILLIGRAM
  7. MORPHINE [Concomitant]
     Active Substance: MORPHINE
     Dosage: 30 MG, 1-0-1-0
  8. METOPROLOL [Concomitant]
     Active Substance: METOPROLOL
     Dosage: 47.5 MILLIGRAM
  9. GABAPENTIN [Concomitant]
     Active Substance: GABAPENTIN
     Dosage: 300 MILLIGRAM
  10. CANDESARTAN [Concomitant]
     Active Substance: CANDESARTAN
     Dosage: 8 MILLIGRAM
  11. POTASSIUM CHLORIDE [Concomitant]
     Active Substance: POTASSIUM CHLORIDE
     Dosage: UNK

REACTIONS (5)
  - Skin irritation [Unknown]
  - General physical health deterioration [Unknown]
  - Oedema peripheral [Unknown]
  - Renal impairment [Unknown]
  - Dyspnoea [Unknown]
